FAERS Safety Report 19263144 (Version 1)
Quarter: 2021Q2

REPORT INFORMATION
  Report Type: Spontaneous
  Country: GB (occurrence: GB)
  Receive Date: 20210517
  Receipt Date: 20210517
  Transmission Date: 20210717
  Serious: No
  Sender: FDA-Public Use
  Company Number: GB-ALKEM LABORATORIES LIMITED-GB-ALKEM-2021-02163

PATIENT

DRUGS (15)
  1. BISOPROLOL [Concomitant]
     Active Substance: BISOPROLOL
     Indication: PRODUCT USED FOR UNKNOWN INDICATION
     Route: 065
     Dates: start: 20201111
  2. DULOXETINE. [Concomitant]
     Active Substance: DULOXETINE
     Indication: PRODUCT USED FOR UNKNOWN INDICATION
     Dosage: 1 DOSAGE FORM, QD
     Route: 065
     Dates: start: 20210408
  3. BUMETANIDE. [Concomitant]
     Active Substance: BUMETANIDE
     Indication: PRODUCT USED FOR UNKNOWN INDICATION
     Dosage: TAKE ONE EACH MORNING AS REQUIRED IF INCREASED ...
     Route: 065
     Dates: start: 20201111
  4. LACTULOSE. [Concomitant]
     Active Substance: LACTULOSE
     Indication: PRODUCT USED FOR UNKNOWN INDICATION
     Dosage: 15ML TWICE DAILY
     Route: 065
     Dates: start: 20201111
  5. ORAMORPH [Concomitant]
     Active Substance: MORPHINE SULFATE
     Indication: PRODUCT USED FOR UNKNOWN INDICATION
     Dosage: 5 MILLILITER
     Route: 065
     Dates: start: 20210114
  6. ADCAL [Concomitant]
     Indication: PRODUCT USED FOR UNKNOWN INDICATION
     Dosage: 2 DOSAGE FORM
     Route: 065
     Dates: start: 20201111
  7. COCODAMOL [Concomitant]
     Active Substance: ACETAMINOPHEN\CODEINE PHOSPHATE
     Indication: PRODUCT USED FOR UNKNOWN INDICATION
     Dosage: 1?2 TABLET WHEN NEEDED , MAX TO BE TAKEN FOUR T...
     Route: 065
     Dates: start: 20210118
  8. RAMIPRIL. [Concomitant]
     Active Substance: RAMIPRIL
     Indication: PRODUCT USED FOR UNKNOWN INDICATION
     Dosage: 1 DOSAGE FORM, QD
     Route: 065
     Dates: start: 20201111
  9. PREGABALIN. [Suspect]
     Active Substance: PREGABALIN
     Indication: PRODUCT USED FOR UNKNOWN INDICATION
     Dosage: IF TOLERATED CAN INCREASE...
     Route: 065
     Dates: start: 20210325
  10. ZOMORPH [Concomitant]
     Active Substance: MORPHINE SULFATE
     Indication: PRODUCT USED FOR UNKNOWN INDICATION
     Route: 065
     Dates: start: 20210115, end: 20210118
  11. ATORVASTATIN [Concomitant]
     Active Substance: ATORVASTATIN
     Indication: PRODUCT USED FOR UNKNOWN INDICATION
     Dosage: 1 DOSAGE FORM, QD
     Route: 065
     Dates: start: 20201111
  12. CARBOMER [Concomitant]
     Active Substance: CARBOMER
     Indication: PRODUCT USED FOR UNKNOWN INDICATION
     Dosage: AT NIGHT
     Route: 065
     Dates: start: 20201111
  13. AMITRIPTYLINE HYDROCHLORIDE. [Concomitant]
     Active Substance: AMITRIPTYLINE HYDROCHLORIDE
     Indication: PRODUCT USED FOR UNKNOWN INDICATION
     Dosage: TAKE ONE TO TWO AT NIGHT, OR 1 TWICE DAILY IF P...
     Route: 065
     Dates: start: 20210118
  14. APIXABAN [Concomitant]
     Active Substance: APIXABAN
     Indication: PRODUCT USED FOR UNKNOWN INDICATION
     Dosage: 1 DOSAGE FORM
     Route: 065
     Dates: start: 20201111
  15. HYPROMELLOSE [Concomitant]
     Active Substance: HYPROMELLOSES
     Indication: PRODUCT USED FOR UNKNOWN INDICATION
     Dosage: 1?2 DROPS LEFT EYE TO BE TAKEN FOUR TIMES DAILY
     Route: 065
     Dates: start: 20201111

REACTIONS (1)
  - Diplopia [Recovered/Resolved]

NARRATIVE: CASE EVENT DATE: 20210408
